FAERS Safety Report 5305524-0 (Version None)
Quarter: 2007Q2

REPORT INFORMATION
  Report Type: 
  Country: None (occurrence: None)
  Receive Date: 20070424
  Receipt Date: 20060530
  Transmission Date: 20071010
  Serious: No
  Sender: FDA-Public Use
  Company Number: US-GLAXOSMITHKLINE-A0607240A

PATIENT
  Age: 57 Year
  Sex: Female

DRUGS (8)
  1. FLOVENT [Suspect]
     Indication: ASTHMA
     Dosage: 110MCG TWICE PER DAY
     Route: 055
     Dates: start: 20060518, end: 20060524
  2. SINGULAIR [Suspect]
     Dosage: 10MG UNKNOWN
     Dates: start: 20060518, end: 20060524
  3. ALBUTEROL [Concomitant]
  4. POTASSIUM ACETATE [Concomitant]
  5. PROCARDIA XL [Concomitant]
  6. SYNTHROID [Concomitant]
  7. HYDROCHLOROTHIAZIDE [Concomitant]
  8. VITAMINS [Concomitant]

REACTIONS (4)
  - MIGRAINE [None]
  - PAIN IN EXTREMITY [None]
  - VISION BLURRED [None]
  - VISUAL DISTURBANCE [None]
